FAERS Safety Report 8819084 (Version 3)
Quarter: 2012Q4

REPORT INFORMATION
  Report Type: 
  Country: IL (occurrence: IL)
  Receive Date: 20121001
  Receipt Date: 20121030
  Transmission Date: 20130627
  Serious: Yes (Other)
  Sender: FDA-Public Use
  Company Number: IL-ABBOTT-12P-082-0988747-00

PATIENT
  Sex: Female
  Weight: 82 kg

DRUGS (4)
  1. HUMIRA [Suspect]
     Indication: PSORIATIC ARTHROPATHY
     Dates: end: 201205
  2. STEROID [Suspect]
     Indication: PRODUCT USED FOR UNKNOWN INDICATION
     Dosage: Once or twice
     Dates: start: 2010
  3. MTX [Concomitant]
     Indication: PROSTATIC SPECIFIC ANTIGEN
  4. SIMOVIL [Concomitant]
     Indication: HYPERLIPIDAEMIA
     Route: 048
     Dates: start: 2011

REACTIONS (1)
  - Breast cancer [Recovering/Resolving]
